FAERS Safety Report 18667915 (Version 1)
Quarter: 2020Q4

REPORT INFORMATION
  Report Type: Spontaneous
  Country: MY (occurrence: MY)
  Receive Date: 20201228
  Receipt Date: 20201228
  Transmission Date: 20210114
  Serious: Yes (Other)
  Sender: FDA-Public Use
  Company Number: MY-ASTELLAS-2020US026652

PATIENT
  Age: 81 Year
  Sex: Male

DRUGS (2)
  1. XTANDI [Suspect]
     Active Substance: ENZALUTAMIDE
     Route: 048
     Dates: start: 20200723, end: 202011
  2. XTANDI [Suspect]
     Active Substance: ENZALUTAMIDE
     Indication: HORMONE-REFRACTORY PROSTATE CANCER
     Route: 048
     Dates: start: 20200627

REACTIONS (7)
  - Insomnia [Unknown]
  - Somnolence [Unknown]
  - Subdural haematoma [Unknown]
  - Fatigue [Unknown]
  - Confusional state [Unknown]
  - Wheelchair user [Unknown]
  - Fall [Unknown]
